FAERS Safety Report 4655102-1 (Version None)
Quarter: 2005Q2

REPORT INFORMATION
  Report Type: 
  Country: None (occurrence: None)
  Receive Date: 20050505
  Receipt Date: 20050425
  Transmission Date: 20051028
  Serious: Yes (Other)
  Sender: FDA-Public Use
  Company Number: FRWYE614525APR05

PATIENT
  Sex: 0

DRUGS (1)
  1. EFFEXOR XR [Suspect]
     Dosage: 7 CAPSULE 1X PER 1 DAY ORAL; 6 CAPSULE 1X PER 1 DAY ORAL
     Route: 048

REACTIONS (2)
  - ACUTE PULMONARY OEDEMA [None]
  - HYPERTENSION [None]
